FAERS Safety Report 7351624-3 (Version None)
Quarter: 2011Q1

REPORT INFORMATION
  Report Type: 
  Country: None (occurrence: None)
  Receive Date: 20110315
  Receipt Date: 20110307
  Transmission Date: 20110831
  Serious: Yes (Hospitalization)
  Sender: FDA-Public Use
  Company Number: US-BIOGENIDEC-2010BI037562

PATIENT
  Age: 45 Year
  Sex: Female
  Weight: 54 kg

DRUGS (1)
  1. TYSABRI [Suspect]
     Indication: MULTIPLE SCLEROSIS
     Route: 042
     Dates: start: 20100329, end: 20110113

REACTIONS (8)
  - PANCREATIC DISORDER [None]
  - VOMITING [None]
  - OEDEMA [None]
  - DEHYDRATION [None]
  - DIARRHOEA [None]
  - POOR VENOUS ACCESS [None]
  - PAIN [None]
  - INFUSION SITE HAEMATOMA [None]
